FAERS Safety Report 9294644 (Version 4)
Quarter: 2013Q3

REPORT INFORMATION
  Report Type: Report from Study
  Country: UA (occurrence: UA)
  Receive Date: 20130516
  Receipt Date: 20130722
  Transmission Date: 20140515
  Serious: Yes (Other)
  Sender: FDA-Public Use
  Company Number: UA-TEVA-405562ISR

PATIENT
  Age: 58 Year
  Sex: Female
  Weight: 77 kg

DRUGS (5)
  1. ARMODAFINIL [Suspect]
     Indication: BIPOLAR I DISORDER
     Dosage: ARMODAFINIL VS. PLACEBO.
     Route: 048
     Dates: start: 20130430, end: 20130507
  2. ZALEPLONI [Concomitant]
     Indication: INSOMNIA
     Dosage: BEFORE SLEEP
     Route: 048
     Dates: start: 20130501
  3. LAMOTRIGINE [Concomitant]
     Indication: MOOD ALTERED
     Dosage: 100 MILLIGRAM DAILY;
     Route: 048
     Dates: start: 20120425, end: 20130206
  4. LAMOTRIGINE [Concomitant]
     Dosage: 175 MILLIGRAM DAILY;
     Route: 048
     Dates: start: 20130207, end: 20130312
  5. LAMOTRIGINE [Concomitant]
     Dosage: 200 MILLIGRAM DAILY;
     Route: 048
     Dates: start: 20130313

REACTIONS (1)
  - Toxic skin eruption [Recovered/Resolved]
